FAERS Safety Report 9210532 (Version 2)
Quarter: 2014Q1

REPORT INFORMATION
  Report Type: Spontaneous
  Country: US (occurrence: US)
  Receive Date: 20130404
  Receipt Date: 20140107
  Transmission Date: 20141002
  Serious: Yes (Other)
  Sender: FDA-Public Use
  Company Number: US-BAYER-2013-041120

PATIENT
  Age: 21 Year
  Sex: Female

DRUGS (4)
  1. YAZ [Suspect]
     Dosage: UNK
     Dates: start: 20080411
  2. YASMIN [Suspect]
     Dosage: UNK
     Dates: start: 20080411
  3. OCELLA [Suspect]
     Dosage: UNK
     Dates: start: 20080411
  4. GIANVI [Suspect]
     Dosage: UNK
     Dates: start: 20080411

REACTIONS (9)
  - Gallbladder injury [None]
  - Cholecystitis chronic [None]
  - Deep vein thrombosis [None]
  - Injury [None]
  - Pain [None]
  - General physical health deterioration [None]
  - Emotional distress [None]
  - Pain [None]
  - Anxiety [None]
